FAERS Safety Report 9011220 (Version 1)
Quarter: 2013Q1

REPORT INFORMATION
  Report Type: Spontaneous
  Country: US (occurrence: US)
  Receive Date: 20130109
  Receipt Date: 20130109
  Transmission Date: 20140127
  Serious: No
  Sender: FDA-Public Use
  Company Number: US-BIOGENIDEC-2011BI033257

PATIENT
  Age: 32 Year
  Sex: Female

DRUGS (1)
  1. AVONEX [Suspect]
     Indication: MULTIPLE SCLEROSIS
     Route: 030
     Dates: start: 20110630, end: 201111

REACTIONS (9)
  - Toxicity to various agents [Recovered/Resolved]
  - Multiple sclerosis [Unknown]
  - General symptom [Recovered/Resolved]
  - Depression [Unknown]
  - Pain in extremity [Unknown]
  - Suicidal ideation [Recovered/Resolved]
  - Depressed mood [Recovered/Resolved]
  - Multiple sclerosis relapse [Recovered/Resolved]
  - Chills [Not Recovered/Not Resolved]
